FAERS Safety Report 4629693-0 (Version None)
Quarter: 2005Q1

REPORT INFORMATION
  Report Type: 
  Country: None (occurrence: None)
  Receive Date: 20050107
  Receipt Date: 20040930
  Transmission Date: 20050727
  Serious: No
  Sender: FDA-Public Use
  Company Number: 234224K04USA

PATIENT
  Age: 43 Year
  Sex: Male

DRUGS (2)
  1. REBIF [Suspect]
     Dosage: 22 MCG, 3 IN 1 WEEKS, SUBCUTANEOUS; 44 MCG, 3 IN 1 WK, SC;  22 MCG, NOT REPORTED, SC
     Route: 058
     Dates: start: 20040805, end: 20041007
  2. REBIF [Suspect]
     Dosage: 22 MCG, 3 IN 1 WEEKS, SUBCUTANEOUS; 44 MCG, 3 IN 1 WK, SC;  22 MCG, NOT REPORTED, SC
     Route: 058
     Dates: end: 20041007

REACTIONS (13)
  - ABDOMINAL DISTENSION [None]
  - ABDOMINAL PAIN [None]
  - ASTHENIA [None]
  - FALL [None]
  - FEELING JITTERY [None]
  - INJECTION SITE PAIN [None]
  - INJECTION SITE REACTION [None]
  - LOSS OF CONSCIOUSNESS [None]
  - NERVOUSNESS [None]
  - PAIN [None]
  - PRURITUS [None]
  - RASH MACULAR [None]
  - SYNCOPE [None]
